FAERS Safety Report 9386163 (Version 1)
Quarter: 2013Q3

REPORT INFORMATION
  Report Type: Spontaneous
  Country: US (occurrence: US)
  Receive Date: 20130707
  Receipt Date: 20130707
  Transmission Date: 20140515
  Serious: No
  Sender: FDA-Public Use
  Company Number: US-ALLERGAN-1307997US

PATIENT
  Age: 61 Year
  Sex: Female

DRUGS (8)
  1. LUMIGAN? 0.01% [Suspect]
     Indication: GLAUCOMA
     Dosage: 2 GTT, QHS
     Route: 047
     Dates: start: 201305
  2. SYSTANE [Concomitant]
     Indication: PRODUCT USED FOR UNKNOWN INDICATION
  3. NOVOLOG [Concomitant]
     Indication: DIABETES MELLITUS
  4. LANTUS [Concomitant]
     Indication: DIABETES MELLITUS
  5. PAIN PILLS [Concomitant]
     Indication: PRODUCT USED FOR UNKNOWN INDICATION
     Dosage: UNK
  6. HEART PILLS [Concomitant]
     Indication: PRODUCT USED FOR UNKNOWN INDICATION
  7. CHOLESTEROL PILLS [Concomitant]
     Indication: PRODUCT USED FOR UNKNOWN INDICATION
  8. ANTI-SPASMODIC PILLS [Concomitant]
     Indication: MUSCULOSKELETAL DISORDER

REACTIONS (3)
  - Dry eye [Unknown]
  - Visual acuity reduced [Unknown]
  - Vision blurred [Unknown]
